FAERS Safety Report 18215439 (Version 2)
Quarter: 2020Q3

REPORT INFORMATION
  Report Type: Spontaneous
  Country: AR (occurrence: AR)
  Receive Date: 20200901
  Receipt Date: 20200916
  Transmission Date: 20201103
  Serious: Yes (Other)
  Sender: FDA-Public Use
  Company Number: AR-AMGEN-ARGSP2020141066

PATIENT
  Age: 45 Year
  Sex: Female

DRUGS (1)
  1. ENBREL [Suspect]
     Active Substance: ETANERCEPT
     Indication: PSORIATIC ARTHROPATHY
     Dosage: 50 MG, WEEKLY
     Route: 065
     Dates: start: 20180807

REACTIONS (5)
  - Psoriatic arthropathy [Not Recovered/Not Resolved]
  - Intervertebral disc protrusion [Unknown]
  - Hyperhidrosis [Recovered/Resolved]
  - Stress [Unknown]
  - Fear [Unknown]

NARRATIVE: CASE EVENT DATE: 202003
